FAERS Safety Report 26180732 (Version 1)
Quarter: 2025Q4

REPORT INFORMATION
  Report Type: Spontaneous
  Country: US (occurrence: None)
  Receive Date: 20251219
  Receipt Date: 20251219
  Transmission Date: 20260117
  Serious: Yes (Other)
  Sender: FDA-CTU
  Company Number: None

PATIENT
  Age: 42 Year
  Sex: Female
  Weight: 73.35 kg

DRUGS (2)
  1. TESTOSTERONE CYPIONATE [Suspect]
     Active Substance: TESTOSTERONE CYPIONATE
     Dosage: 20 MG/ML INTRAMUSCULAR
     Route: 030
     Dates: start: 20251211
  2. TIRZEPATIDE [Suspect]
     Active Substance: TIRZEPATIDE
     Dates: start: 20251211

REACTIONS (6)
  - Rash erythematous [None]
  - Rash [None]
  - Eye swelling [None]
  - Dyspnoea [None]
  - Dysphagia [None]
  - Psoriasis [None]

NARRATIVE: CASE EVENT DATE: 20251211
